FAERS Safety Report 23860230 (Version 2)
Quarter: 2024Q3

REPORT INFORMATION
  Report Type: Spontaneous
  Country: US (occurrence: US)
  Receive Date: 20240515
  Receipt Date: 20240722
  Transmission Date: 20241016
  Serious: No
  Sender: BAUSCH AND LOMB
  Company Number: US-BAUSCHBL-2024BNL026759

PATIENT
  Sex: Male

DRUGS (1)
  1. XIIDRA [Suspect]
     Active Substance: LIFITEGRAST
     Indication: Product used for unknown indication
     Route: 065

REACTIONS (6)
  - Eye disorder [Unknown]
  - Product dose omission in error [Unknown]
  - Wrong dose [Unknown]
  - Product size issue [Unknown]
  - Product packaging quantity issue [Unknown]
  - Product packaging issue [Unknown]
